FAERS Safety Report 22278757 (Version 1)
Quarter: 2023Q2

REPORT INFORMATION
  Report Type: Spontaneous
  Country: US (occurrence: US)
  Receive Date: 20230503
  Receipt Date: 20230503
  Transmission Date: 20230722
  Serious: Yes (Hospitalization)
  Sender: FDA-Public Use
  Company Number: US-MYLANLABS-2023M1046614

PATIENT
  Age: 61 Year
  Sex: Female

DRUGS (1)
  1. SERTRALINE [Suspect]
     Active Substance: SERTRALINE HYDROCHLORIDE
     Indication: Product used for unknown indication
     Dosage: UNK
     Route: 065

REACTIONS (7)
  - Long-chain acyl-coenzyme A dehydrogenase deficiency [Recovering/Resolving]
  - Syncope [Recovering/Resolving]
  - Dysphagia [Recovering/Resolving]
  - Trismus [Recovering/Resolving]
  - Rhabdomyolysis [Recovered/Resolved]
  - Metabolic acidosis [Recovering/Resolving]
  - Mitochondrial toxicity [Recovering/Resolving]
